FAERS Safety Report 10065611 (Version 3)
Quarter: 2014Q2

REPORT INFORMATION
  Report Type: Spontaneous
  Country: US (occurrence: US)
  Receive Date: 20140408
  Receipt Date: 20140423
  Transmission Date: 20141212
  Serious: No
  Sender: FDA-Public Use
  Company Number: US-PFIZER INC-2014088854

PATIENT
  Age: 52 Year
  Sex: Male
  Weight: 99.77 kg

DRUGS (1)
  1. LYRICA [Suspect]
     Indication: SCIATICA
     Dosage: UNK, DAILY
     Route: 048
     Dates: start: 2013

REACTIONS (1)
  - Muscle swelling [Unknown]
